FAERS Safety Report 9116069 (Version 2)
Quarter: 2013Q2

REPORT INFORMATION
  Report Type: Spontaneous
  Country: JP (occurrence: JP)
  Receive Date: 20130225
  Receipt Date: 20130429
  Transmission Date: 20140414
  Serious: Yes (Other)
  Sender: FDA-Public Use
  Company Number: JP-PFIZER INC-2013066924

PATIENT
  Age: 83 Year
  Sex: Female
  Weight: 37 kg

DRUGS (13)
  1. LYRICA [Suspect]
     Indication: BACK PAIN
     Dosage: 75 MG, 1X/DAY
     Route: 048
     Dates: start: 20121025, end: 20121101
  2. LUVOX [Suspect]
     Indication: DEPRESSION
     Dosage: 25 MG, DAILY
     Route: 048
     Dates: start: 20120115, end: 2012
  3. LUVOX [Suspect]
     Dosage: 50 MG DAILY
     Route: 048
     Dates: start: 2012, end: 20120926
  4. LUVOX [Suspect]
     Dosage: 37.5 MG DAILY
     Route: 048
     Dates: start: 20120927, end: 20121010
  5. LUVOX [Suspect]
     Dosage: 25 MG DAILY
     Route: 048
     Dates: start: 20121011
  6. ALFAROL [Concomitant]
     Dosage: 0.25 UG, 1X/DAY
     Route: 048
  7. LENDEM [Concomitant]
     Indication: INSOMNIA
     Dosage: 0.25 MG, 1X/DAY
     Route: 048
  8. MYSLEE [Concomitant]
     Indication: INSOMNIA
     Dosage: 5 MG, 1X/DAY
     Route: 048
  9. GASCON [Concomitant]
     Indication: ABDOMINAL DISTENSION
     Dosage: 40 MG, 3X/DAY
     Route: 048
  10. BIOFERMIN [Concomitant]
     Dosage: 1 G, 3X/DAY
     Route: 048
  11. PURSENNID [Concomitant]
     Indication: CONSTIPATION
     Dosage: 12 MG, 1X/DAY
  12. ALOSENN [Concomitant]
     Indication: CONSTIPATION
     Dosage: 0.5 G, 1X/DAY
  13. ETISEDAN [Concomitant]
     Indication: ANXIETY
     Dosage: 0.5 G, 1X/DAY

REACTIONS (3)
  - Hallucination, visual [Recovering/Resolving]
  - Delirium [Recovering/Resolving]
  - Palpitations [Unknown]
